FAERS Safety Report 9161143 (Version 3)
Quarter: 2013Q3

REPORT INFORMATION
  Report Type: Report from Study
  Country: JP (occurrence: JP)
  Receive Date: 20130313
  Receipt Date: 20130701
  Transmission Date: 20140515
  Serious: Yes (Hospitalization, Other)
  Sender: FDA-Public Use
  Company Number: JP-009507513-2012SP034458

PATIENT
  Age: 28 Year
  Sex: Female

DRUGS (13)
  1. REFLEX [Suspect]
     Indication: DEPRESSION
     Dosage: UNK
     Route: 048
     Dates: start: 20110924, end: 20111013
  2. REFLEX [Suspect]
     Dosage: UNK
     Route: 048
     Dates: start: 20111014, end: 20111110
  3. REFLEX [Suspect]
     Dosage: UNK
     Route: 048
     Dates: start: 20111111, end: 20111113
  4. REFLEX [Suspect]
     Dosage: UNK
     Route: 048
     Dates: start: 20111114, end: 20120420
  5. SOLANAX [Suspect]
     Indication: DEPRESSION
     Dosage: 1.2 MG, QD
     Route: 048
     Dates: start: 20110924, end: 20110929
  6. SOLANAX [Suspect]
     Dosage: 0.8 MG, QD
     Route: 048
     Dates: start: 20110930, end: 20120420
  7. CYMBALTA [Suspect]
     Indication: DEPRESSION
     Dosage: 20 MG, UNK
     Route: 048
     Dates: start: 20120217, end: 20120301
  8. CYMBALTA [Suspect]
     Dosage: 40 MG, UNK
     Route: 048
     Dates: start: 20120302, end: 20120322
  9. CYMBALTA [Suspect]
     Dosage: 60 MG, UNK
     Route: 048
     Dates: start: 20120323, end: 20120420
  10. BROTIZOLAM [Concomitant]
     Indication: SLEEP DISORDER
     Dosage: 0.25 MG, QD
     Route: 048
     Dates: start: 20110924, end: 20120119
  11. ESCITALOPRAM OXALATE [Concomitant]
     Indication: DEPRESSION
     Dosage: 10 MG, QD
     Route: 048
     Dates: start: 20111118, end: 20120106
  12. ESCITALOPRAM OXALATE [Concomitant]
     Dosage: 20 MG, UNK
     Route: 048
     Dates: start: 20120107, end: 20120119
  13. ESCITALOPRAM OXALATE [Concomitant]
     Dosage: 10 MG, UNK
     Route: 048
     Dates: start: 20120120, end: 20120216

REACTIONS (2)
  - Foetal death [Recovered/Resolved]
  - Malaise [Recovered/Resolved]
